FAERS Safety Report 8033726-1 (Version None)
Quarter: 2012Q1

REPORT INFORMATION
  Report Type: 
  Country: None (occurrence: None)
  Receive Date: 20120110
  Receipt Date: 20120105
  Transmission Date: 20120608
  Serious: Yes (Hospitalization, Other)
  Sender: FDA-Public Use
  Company Number: US-GLAXOSMITHKLINE-A0960465A

PATIENT
  Age: 34 Year
  Sex: Female

DRUGS (4)
  1. DIGOXIN [Suspect]
     Indication: PRODUCT USED FOR UNKNOWN INDICATION
     Dates: start: 20111002, end: 20111002
  2. STUDY MEDICATION [Concomitant]
     Dates: start: 20110923, end: 20111005
  3. STUDY MEDICATION [Concomitant]
     Indication: HEPATITIS C
     Dates: start: 20110923, end: 20111005
  4. STUDY MEDICATION [Concomitant]
     Dates: start: 20110923, end: 20111005

REACTIONS (1)
  - INTERSTITIAL LUNG DISEASE [None]
